FAERS Safety Report 23601300 (Version 1)
Quarter: 2024Q1

REPORT INFORMATION
  Report Type: Spontaneous
  Country: US (occurrence: US)
  Receive Date: 20240306
  Receipt Date: 20240306
  Transmission Date: 20240410
  Serious: No
  Sender: FDA-Public Use
  Company Number: US-ALNYLAM PHARMACEUTICALS, INC.-ALN-2024-001194

PATIENT

DRUGS (2)
  1. ONPATTRO [Suspect]
     Active Substance: PATISIRAN SODIUM
     Indication: Cardiac amyloidosis
     Dosage: 0.3 MILLIGRAM, Q3W
     Route: 042
  2. AMVUTTRA [Suspect]
     Active Substance: VUTRISIRAN
     Indication: Cardiac amyloidosis
     Dosage: 25 MILLIGRAM, Q3M (4 INJECTION A YEAR)
     Route: 065

REACTIONS (1)
  - Product prescribing issue [Unknown]
